FAERS Safety Report 20713166 (Version 11)
Quarter: 2024Q3

REPORT INFORMATION
  Report Type: Report from Study
  Country: DE (occurrence: DE)
  Receive Date: 20220415
  Receipt Date: 20240701
  Transmission Date: 20241016
  Serious: Yes (Hospitalization, Other)
  Sender: PUMA
  Company Number: DE-PFM-2021-11011

PATIENT

DRUGS (4)
  1. NERATINIB [Suspect]
     Active Substance: NERATINIB
     Indication: Breast cancer
     Dosage: 80 MG, UNK
     Route: 065
     Dates: start: 20211025
  2. NERATINIB [Suspect]
     Active Substance: NERATINIB
     Dosage: 160 MG/DAY
     Route: 048
     Dates: end: 20220328
  3. LOPERAMIDE [Concomitant]
     Active Substance: LOPERAMIDE
     Indication: Prophylaxis against diarrhoea
     Dosage: 4 MG, TID (3/DAY)
     Route: 048
     Dates: start: 20211025, end: 2022
  4. TAMOXIFEN [Concomitant]
     Active Substance: TAMOXIFEN
     Indication: Breast cancer
     Dosage: UNK
     Route: 065
     Dates: start: 20200603

REACTIONS (6)
  - Colitis [Not Recovered/Not Resolved]
  - Mucosal inflammation [Recovered/Resolved]
  - Diarrhoea [Recovered/Resolved]
  - Abdominal pain upper [Recovered/Resolved]
  - Prescribed underdose [Unknown]
  - Off label use [Unknown]

NARRATIVE: CASE EVENT DATE: 20211025
